FAERS Safety Report 4658253-0 (Version None)
Quarter: 2005Q2

REPORT INFORMATION
  Report Type: 
  Country: None (occurrence: None)
  Receive Date: 20050511
  Receipt Date: 20041021
  Transmission Date: 20051028
  Serious: Yes (Death, Life-Threatening, Hospitalization, Other)
  Sender: FDA-Public Use
  Company Number: US-RB-1021-2004

PATIENT
  Sex: Male
  Weight: 79.45 kg

DRUGS (4)
  1. SUBOXONE [Suspect]
     Indication: DRUG DEPENDENCE
     Route: 060
     Dates: start: 20040405, end: 20041013
  2. INTERFERON [Concomitant]
     Indication: HEPATITIS C
     Route: 058
     Dates: start: 20040914, end: 20041013
  3. RIBAVIRIN [Concomitant]
     Indication: HEPATITIS C
     Route: 048
     Dates: start: 20040914, end: 20041013
  4. ESCITALOPRAM [Concomitant]
     Indication: DEPRESSION
     Route: 048
     Dates: start: 20040427, end: 20041013

REACTIONS (10)
  - ANAEMIA [None]
  - CARDIAC FAILURE [None]
  - DRUG ABUSER [None]
  - FALL [None]
  - FATIGUE [None]
  - HAEMODYNAMIC INSTABILITY [None]
  - LOCALISED INFECTION [None]
  - MUSCLE SPASMS [None]
  - OEDEMA PERIPHERAL [None]
  - PAIN IN EXTREMITY [None]
